FAERS Safety Report 22284325 (Version 2)
Quarter: 2023Q2

REPORT INFORMATION
  Report Type: Spontaneous
  Country: US (occurrence: US)
  Receive Date: 20230504
  Receipt Date: 20230613
  Transmission Date: 20230722
  Serious: Yes (Other)
  Sender: FDA-Public Use
  Company Number: US-GILEAD-2023-0626639

PATIENT
  Age: 64 Year
  Sex: Female
  Weight: 11.8 kg

DRUGS (7)
  1. YESCARTA [Suspect]
     Active Substance: AXICABTAGENE CILOLEUCEL
     Indication: Diffuse large B-cell lymphoma
     Dosage: 100 ML
     Route: 042
     Dates: start: 20230417, end: 20230417
  2. LEVOTHYROXINE [Concomitant]
     Active Substance: LEVOTHYROXINE
     Dosage: 137MG PO DAILY
  3. ALLOPURINOL [Concomitant]
     Active Substance: ALLOPURINOL
     Dosage: 300MG PO DAILY
  4. BRIMONIDINE TARTRATE\TIMOLOL MALEATE [Concomitant]
     Active Substance: BRIMONIDINE TARTRATE\TIMOLOL MALEATE
     Dosage: 0.2-0.5% SOLUTION 1 DROP IN BOTH EYES 2X DAILY
  5. LORAZEPAM [Concomitant]
     Active Substance: LORAZEPAM
     Dosage: 0.5MG PO 3X DAILY
  6. APIXABAN [Concomitant]
     Active Substance: APIXABAN
     Dosage: 5MG PO BID FOR 3 MONTHS
  7. LORATADINE [Concomitant]
     Active Substance: LORATADINE
     Dosage: 10 MG PO

REACTIONS (3)
  - Cytokine release syndrome [Recovered/Resolved]
  - Deep vein thrombosis [Recovered/Resolved]
  - Liver disorder [Recovered/Resolved]

NARRATIVE: CASE EVENT DATE: 20230418
